FAERS Safety Report 7680878-9 (Version None)
Quarter: 2011Q3

REPORT INFORMATION
  Report Type: 
  Country: None (occurrence: None)
  Receive Date: 20110812
  Receipt Date: 20110804
  Transmission Date: 20111222
  Serious: Yes (Hospitalization, Other)
  Sender: FDA-Public Use
  Company Number: US-MERCK-0907USA04004

PATIENT
  Age: 68 Year
  Sex: Female

DRUGS (6)
  1. FOSINOPRIL SODIUM [Concomitant]
     Indication: BLOOD PRESSURE INCREASED
     Route: 065
     Dates: start: 20000101
  2. FOSAMAX [Suspect]
     Route: 048
     Dates: start: 19970101
  3. FOSAMAX [Suspect]
     Indication: OSTEOPOROSIS PROPHYLAXIS
     Route: 048
     Dates: start: 20020101, end: 20070622
  4. METOPROLOL [Concomitant]
     Indication: BLOOD PRESSURE INCREASED
     Route: 065
     Dates: start: 20000101
  5. FOSAMAX [Suspect]
     Route: 048
     Dates: start: 19970101
  6. FOSAMAX [Suspect]
     Indication: OSTEOSCLEROSIS
     Route: 048
     Dates: start: 20020101, end: 20070622

REACTIONS (37)
  - OSTEONECROSIS OF JAW [None]
  - AMALGAM TATTOO [None]
  - DYSGEUSIA [None]
  - HYPOTENSION [None]
  - HYPERTENSION [None]
  - TACHYCARDIA [None]
  - DENTAL FISTULA [None]
  - OSTEOARTHRITIS [None]
  - ADVERSE EVENT [None]
  - SUPRAVENTRICULAR TACHYCARDIA [None]
  - DENTAL CARIES [None]
  - BLOOD CHOLESTEROL INCREASED [None]
  - ACCIDENTAL OVERDOSE [None]
  - VOMITING [None]
  - WOLFF-PARKINSON-WHITE SYNDROME [None]
  - IMPAIRED HEALING [None]
  - OSTEITIS [None]
  - AGITATION [None]
  - COGNITIVE DISORDER [None]
  - DIABETES MELLITUS [None]
  - ORAL INFECTION [None]
  - MASTICATION DISORDER [None]
  - LEUKOPLAKIA ORAL [None]
  - LACUNAR INFARCTION [None]
  - GINGIVAL BLEEDING [None]
  - TOOTH FRACTURE [None]
  - BRUXISM [None]
  - DEMENTIA [None]
  - BREATH ODOUR [None]
  - HYPERTENSIVE CRISIS [None]
  - NAUSEA [None]
  - CAROTID ARTERY INSUFFICIENCY [None]
  - OSTEOMYELITIS [None]
  - TRISMUS [None]
  - TOOTH DISORDER [None]
  - RETINOPATHY [None]
  - CATARACT [None]
